FAERS Safety Report 7946889-0 (Version None)
Quarter: 2011Q4

REPORT INFORMATION
  Report Type: 
  Country: None (occurrence: None)
  Receive Date: 20111129
  Receipt Date: 20111126
  Transmission Date: 20120403
  Serious: Yes (Other)
  Sender: FDA-Public Use
  Company Number: US-CEPHALON-US013611

PATIENT
  Sex: Male
  Weight: 119 kg

DRUGS (9)
  1. BEXTRA [Concomitant]
     Indication: BACK PAIN
     Route: 048
     Dates: end: 20040708
  2. PREVACID [Concomitant]
     Indication: GASTROOESOPHAGEAL REFLUX DISEASE
     Route: 048
  3. TESTOSTERONE [Concomitant]
     Indication: BLOOD TESTOSTERONE DECREASED
     Route: 058
  4. OXYCODONE HCL [Concomitant]
     Indication: BACK PAIN
     Route: 048
  5. PROZAC [Concomitant]
     Indication: CHRONIC FATIGUE SYNDROME
     Route: 048
  6. LIPITOR [Concomitant]
     Indication: HYPERCHOLESTEROLAEMIA
     Route: 048
  7. OXYCONTIN [Concomitant]
     Indication: BACK PAIN
     Route: 048
  8. PROVIGIL [Suspect]
     Indication: SLEEP APNOEA SYNDROME
     Route: 048
     Dates: start: 20040419, end: 20040807
  9. CELEBREX [Concomitant]
     Indication: BACK PAIN
     Route: 048
     Dates: end: 20040708

REACTIONS (1)
  - PULMONARY ARTERIAL HYPERTENSION [None]
